FAERS Safety Report 15262300 (Version 10)
Quarter: 2019Q1

REPORT INFORMATION
  Report Type: Report from Study
  Country: US (occurrence: US)
  Receive Date: 20180809
  Receipt Date: 20190222
  Transmission Date: 20190417
  Serious: Yes (Hospitalization)
  Sender: FDA-Public Use
  Company Number: US-ACTELION-A-NJ2017-164638

PATIENT
  Age: 63 Year
  Sex: Female
  Weight: 40.82 kg

DRUGS (7)
  1. VELETRI [Suspect]
     Active Substance: EPOPROSTENOL
     Dosage: 5 NG/KG, PER MIN
     Route: 042
  2. VELETRI [Suspect]
     Active Substance: EPOPROSTENOL
     Dosage: UNK
     Route: 042
  3. LETAIRIS [Concomitant]
     Active Substance: AMBRISENTAN
  4. VELETRI [Suspect]
     Active Substance: EPOPROSTENOL
     Indication: PULMONARY HYPERTENSION
     Dosage: 20 NG/KG, PER MIN
     Route: 042
  5. VELETRI [Suspect]
     Active Substance: EPOPROSTENOL
     Dosage: 12 NG/KG, PER MIN
     Route: 042
  6. VELETRI [Suspect]
     Active Substance: EPOPROSTENOL
     Dosage: 4 NG/KG, PER MIN
     Route: 042
  7. ADEMPAS [Concomitant]
     Active Substance: RIOCIGUAT

REACTIONS (35)
  - Hospitalisation [Unknown]
  - Headache [Unknown]
  - Dyspnoea exertional [Unknown]
  - Fluid retention [Unknown]
  - Nasopharyngitis [Unknown]
  - Catheter site pruritus [Unknown]
  - Catheter site vesicles [Unknown]
  - Fall [Unknown]
  - Fluid overload [Recovering/Resolving]
  - Neck pain [Unknown]
  - Skin irritation [Unknown]
  - Catheter site inflammation [Unknown]
  - Device dislocation [Recovered/Resolved]
  - Catheterisation cardiac [Unknown]
  - Unevaluable event [Unknown]
  - Pain in jaw [Unknown]
  - Nausea [Unknown]
  - Diarrhoea [Not Recovered/Not Resolved]
  - Faeces soft [Unknown]
  - Cough [Unknown]
  - Decreased appetite [Unknown]
  - Back pain [Unknown]
  - Weight decreased [Unknown]
  - Pruritus generalised [Not Recovered/Not Resolved]
  - Pleural effusion [Unknown]
  - Dyspnoea [Not Recovered/Not Resolved]
  - Asthenia [Unknown]
  - Multiple allergies [Unknown]
  - Joint injury [Unknown]
  - Product dose omission [Recovered/Resolved]
  - Wrist fracture [Unknown]
  - Drug effect incomplete [Unknown]
  - Rash generalised [Not Recovered/Not Resolved]
  - Malaise [Unknown]
  - Clostridium test positive [Recovering/Resolving]

NARRATIVE: CASE EVENT DATE: 201802
